FAERS Safety Report 8514181-1 (Version None)
Quarter: 2012Q2

REPORT INFORMATION
  Report Type: 
  Country: None (occurrence: None)
  Receive Date: 20120406
  Receipt Date: 20120213
  Transmission Date: 20120825
  Serious: Yes (Hospitalization)
  Sender: FDA-Public Use
  Company Number: US-CYPR-2012-000002

PATIENT
  Sex: Male
  Weight: 112 kg

DRUGS (16)
  1. BYSTOLIC [Concomitant]
  2. CLOPIDOGREL [Suspect]
     Indication: ANTIPLATELET THERAPY
     Dosage: (75 MG ORAL)
     Route: 048
     Dates: start: 20111013
  3. ACTOS [Concomitant]
  4. METFORMIN [Concomitant]
  5. LANOXIN [Concomitant]
  6. SIMVASTATIN [Concomitant]
  7. AMARYL [Concomitant]
  8. OMEPRAZOLE [Concomitant]
  9. LEVEMIR [Concomitant]
  10. FUROSEMIDE [Concomitant]
  11. CYPHER STENT [Concomitant]
  12. LOPID [Concomitant]
  13. NOVOLOG [Concomitant]
  14. ASPIRIN [Suspect]
     Indication: CORONARY ARTERY DISEASE
     Dosage: 325 MG ORAL)
     Route: 048
     Dates: start: 19950101
  15. POTASSIUM CHLORIDE [Concomitant]
  16. IMDUR [Concomitant]

REACTIONS (1)
  - CHRONIC OBSTRUCTIVE PULMONARY DISEASE [None]
